FAERS Safety Report 18518991 (Version 4)
Quarter: 2021Q3

REPORT INFORMATION
  Report Type: Report from Study
  Country: JP (occurrence: JP)
  Receive Date: 20201118
  Receipt Date: 20210716
  Transmission Date: 20211014
  Serious: Yes (Hospitalization, Other)
  Sender: FDA-Public Use
  Company Number: JP-JNJFOC-A-CH2018-168380

PATIENT
  Age: 60 Year
  Sex: Female
  Weight: 54.4 kg

DRUGS (47)
  1. UPTRAVI [Suspect]
     Active Substance: SELEXIPAG
     Route: 048
     Dates: start: 20180130, end: 20190203
  2. OPSUMIT [Suspect]
     Active Substance: MACITENTAN
     Indication: PULMONARY ARTERIAL HYPERTENSION
     Route: 048
     Dates: start: 20170828, end: 201901
  3. ADCIRCA [Concomitant]
     Active Substance: TADALAFIL
     Route: 048
     Dates: start: 20170726
  4. DAIPHEN [Concomitant]
     Active Substance: SULFAMETHOXAZOLE\TRIMETHOPRIM
     Indication: INFECTION PROPHYLAXIS
  5. PREDONINE [Concomitant]
     Active Substance: PREDNISOLONE
     Route: 048
     Dates: start: 20170927, end: 20171010
  6. ENDOXANA [Concomitant]
     Active Substance: CYCLOPHOSPHAMIDE
  7. UPTRAVI [Suspect]
     Active Substance: SELEXIPAG
     Dosage: 0.2 MG, BID
     Route: 048
     Dates: start: 20170726, end: 20170808
  8. UPTRAVI [Suspect]
     Active Substance: SELEXIPAG
     Dosage: 0.6 MG, BID
     Route: 048
     Dates: start: 20170907, end: 20171010
  9. UPTRAVI [Suspect]
     Active Substance: SELEXIPAG
     Dosage: 1.0 MG, BID
     Route: 048
     Dates: start: 20190213, end: 20190627
  10. NEXIUM [Suspect]
     Active Substance: ESOMEPRAZOLE MAGNESIUM
     Indication: PROPHYLAXIS
     Route: 065
     Dates: start: 20170715
  11. PREDONINE [Concomitant]
     Active Substance: PREDNISOLONE
     Dates: start: 20170802, end: 20170814
  12. PREDONINE [Concomitant]
     Active Substance: PREDNISOLONE
     Dates: start: 20180112
  13. PREDONINE [Concomitant]
     Active Substance: PREDNISOLONE
  14. SPIRONOLACTONE. [Concomitant]
     Active Substance: SPIRONOLACTONE
     Dates: start: 20170906
  15. ENDOXAN [Concomitant]
     Active Substance: CYCLOPHOSPHAMIDE
     Indication: MIXED CONNECTIVE TISSUE DISEASE
     Dates: start: 20170913, end: 20170913
  16. ENDOXAN [Concomitant]
     Active Substance: CYCLOPHOSPHAMIDE
     Indication: INTERSTITIAL LUNG DISEASE
     Dates: start: 20171011, end: 20171011
  17. ACECOL                             /01277402/ [Concomitant]
     Active Substance: TEMOCAPRIL HYDROCHLORIDE
  18. ALDACTONE A [Concomitant]
     Active Substance: SPIRONOLACTONE
  19. UPTRAVI [Suspect]
     Active Substance: SELEXIPAG
     Dosage: 0.8 MG, BID
     Route: 048
     Dates: start: 20171010
  20. OPSUMIT [Suspect]
     Active Substance: MACITENTAN
     Dosage: 10 MG, QD
     Route: 048
     Dates: start: 20190206
  21. BONALON [Concomitant]
     Active Substance: ALENDRONATE SODIUM
  22. PREDONINE [Concomitant]
     Active Substance: PREDNISOLONE
     Indication: MIXED CONNECTIVE TISSUE DISEASE
     Dates: end: 20170801
  23. EURAX [Concomitant]
     Active Substance: CROTAMITON
     Indication: SYSTEMIC SCLERODERMA
     Dosage: APPLY AN APPROPRIATE AMOUNT T.I.D.
     Route: 003
     Dates: start: 20190709
  24. ADCIRCA [Concomitant]
     Active Substance: TADALAFIL
     Indication: PULMONARY ARTERIAL HYPERTENSION
     Route: 048
     Dates: end: 20170725
  25. PREDONINE [Concomitant]
     Active Substance: PREDNISOLONE
     Dates: start: 20170815, end: 20170926
  26. FUROSEMIDE. [Concomitant]
     Active Substance: FUROSEMIDE
     Dates: start: 20170906
  27. FAMOTIDINE. [Concomitant]
     Active Substance: FAMOTIDINE
     Indication: GASTROINTESTINAL DISORDER
     Route: 048
     Dates: start: 20190205, end: 20190617
  28. CROTAMITON [Concomitant]
     Active Substance: CROTAMITON
     Indication: SYSTEMIC SCLERODERMA
  29. OPSUMIT [Suspect]
     Active Substance: MACITENTAN
     Dosage: 10 MG, QD
     Route: 048
     Dates: end: 20190203
  30. AZACITIDINE. [Suspect]
     Active Substance: AZACITIDINE
     Indication: MYELODYSPLASTIC SYNDROME
     Route: 065
  31. LANSOPRAZOLE. [Concomitant]
     Active Substance: LANSOPRAZOLE
     Indication: GASTROINTESTINAL DISORDER PROPHYLAXIS
     Route: 048
     Dates: start: 20191017, end: 20200513
  32. IMURAN [Concomitant]
     Active Substance: AZATHIOPRINE
  33. FERROUS SODIUM CITRATE [Concomitant]
     Active Substance: SODIUM FERROUS CITRATE
  34. TANATRIL [Concomitant]
     Active Substance: IMIDAPRIL
     Indication: MIXED CONNECTIVE TISSUE DISEASE
  35. ENDOXAN [Concomitant]
     Active Substance: CYCLOPHOSPHAMIDE
     Dates: start: 20171108, end: 20171108
  36. UPTRAVI [Suspect]
     Active Substance: SELEXIPAG
     Dosage: 1.0 MG, BID
     Route: 048
     Dates: start: 20171108, end: 201901
  37. AZATHIOPRINE. [Suspect]
     Active Substance: AZATHIOPRINE
     Indication: MYELODYSPLASTIC SYNDROME
     Route: 048
     Dates: start: 2018, end: 20180327
  38. CARVEDILOL. [Concomitant]
     Active Substance: CARVEDILOL
     Indication: MIXED CONNECTIVE TISSUE DISEASE
     Dosage: 2.5 MG, QD
  39. ENDOXAN [Concomitant]
     Active Substance: CYCLOPHOSPHAMIDE
     Dates: start: 20180112, end: 20180112
  40. SODIUM RABEPRAZOLE [Concomitant]
     Active Substance: RABEPRAZOLE SODIUM
     Indication: GASTROINTESTINAL DISORDER PROPHYLAXIS
     Route: 048
     Dates: start: 20200514
  41. METOCLOPRAMIDE. [Concomitant]
     Active Substance: METOCLOPRAMIDE
  42. UPTRAVI [Suspect]
     Active Substance: SELEXIPAG
     Indication: PULMONARY ARTERIAL HYPERTENSION
     Dosage: 0.4 MG, BID
     Route: 048
     Dates: start: 20170810, end: 20170906
  43. UPTRAVI [Suspect]
     Active Substance: SELEXIPAG
     Route: 048
     Dates: start: 20190213, end: 20190709
  44. NEXIUM [Suspect]
     Active Substance: ESOMEPRAZOLE MAGNESIUM
     Route: 065
     Dates: start: 20180130, end: 20190204
  45. PREDONINE [Concomitant]
     Active Substance: PREDNISOLONE
     Dates: start: 20171011, end: 20180111
  46. ENDOXAN [Concomitant]
     Active Substance: CYCLOPHOSPHAMIDE
     Dates: start: 20171206, end: 20171206
  47. HIRUDOID [Concomitant]
     Active Substance: GLYCOSAMINOGLYCANS
     Indication: SYSTEMIC SCLERODERMA
     Dosage: APPLY AN APPROPRIATE AMOUNT T.I.D.
     Route: 003
     Dates: start: 20190723

REACTIONS (22)
  - Renal impairment [Recovering/Resolving]
  - Back pain [Recovering/Resolving]
  - Diarrhoea [Recovering/Resolving]
  - Anaemia [Recovering/Resolving]
  - Oedema peripheral [Recovering/Resolving]
  - Osteoporosis [Unknown]
  - Gamma-glutamyltransferase increased [Recovered/Resolved]
  - Iron deficiency anaemia [Recovering/Resolving]
  - Decreased appetite [Recovered/Resolved]
  - Hyperuricaemia [Recovering/Resolving]
  - Hyperglycaemia [Recovering/Resolving]
  - Aspartate aminotransferase increased [Recovered/Resolved]
  - Aspiration bone marrow [Unknown]
  - Myelodysplastic syndrome [Recovered/Resolved]
  - Interstitial lung disease [Recovering/Resolving]
  - Hepatic function abnormal [Recovered/Resolved]
  - Blood alkaline phosphatase increased [Recovered/Resolved]
  - Nausea [Recovering/Resolving]
  - Cardiac failure [Recovered/Resolved]
  - Decubitus ulcer [Recovering/Resolving]
  - C-reactive protein increased [Recovering/Resolving]
  - Eczema [Recovered/Resolved]

NARRATIVE: CASE EVENT DATE: 20170906
